FAERS Safety Report 14898734 (Version 5)
Quarter: 2018Q4

REPORT INFORMATION
  Report Type: Spontaneous
  Country: US (occurrence: US)
  Receive Date: 20180515
  Receipt Date: 20181121
  Transmission Date: 20190204
  Serious: No
  Sender: FDA-Public Use
  Company Number: US-ACTELION-A-US2018-171202

PATIENT
  Age: 74 Year
  Sex: Female

DRUGS (3)
  1. OPSUMIT [Suspect]
     Active Substance: MACITENTAN
     Indication: PULMONARY ARTERIAL HYPERTENSION
     Dosage: 10 MG, QD
     Route: 048
     Dates: start: 20180330
  2. ADEMPAS [Concomitant]
     Active Substance: RIOCIGUAT
     Indication: PRODUCT USED FOR UNKNOWN INDICATION
     Dosage: 1 MG, UNK
     Route: 065
  3. OXYGEN. [Concomitant]
     Active Substance: OXYGEN

REACTIONS (10)
  - Muscle spasms [Unknown]
  - Vomiting [Unknown]
  - Dizziness [Unknown]
  - Pruritus [Unknown]
  - Dyspnoea [Unknown]
  - Alopecia [Unknown]
  - Skin exfoliation [Unknown]
  - Oxygen therapy [Unknown]
  - Dyspnoea exertional [Unknown]
  - Dry skin [Unknown]

NARRATIVE: CASE EVENT DATE: 20180410
